FAERS Safety Report 8838721 (Version 1)
Quarter: 2012Q4

REPORT INFORMATION
  Report Type: 
  Country: US (occurrence: US)
  Receive Date: 20121012
  Receipt Date: 20121012
  Transmission Date: 20130627
  Serious: Yes (Hospitalization)
  Sender: FDA-Public Use
  Company Number: US-ASTRAZENECA-2011SE49729

PATIENT
  Age: 39 Year
  Sex: Male
  Weight: 85.7 kg

DRUGS (3)
  1. NEXIUM [Suspect]
     Indication: OESOPHAGITIS
     Dosage: ONE PILL DAILY
     Route: 048
     Dates: start: 2009
  2. PRILOSEC OTC [Suspect]
     Route: 048
  3. UNKNOWN ASTHMA INHALER [Concomitant]

REACTIONS (6)
  - Throat tightness [Unknown]
  - Dyspepsia [Unknown]
  - Throat irritation [Unknown]
  - Oesophageal food impaction [Unknown]
  - Therapy cessation [Unknown]
  - Drug ineffective [Unknown]
